FAERS Safety Report 7295792-0 (Version None)
Quarter: 2011Q1

REPORT INFORMATION
  Report Type: 
  Country: None (occurrence: None)
  Receive Date: 20110216
  Receipt Date: 20110106
  Transmission Date: 20110831
  Serious: No
  Sender: FDA-Public Use
  Company Number: US-ABBOTT-11P-163-0695688-00

PATIENT
  Sex: Female
  Weight: 72.186 kg

DRUGS (9)
  1. VMT WITH MINERAL [Concomitant]
     Indication: PRODUCT USED FOR UNKNOWN INDICATION
  2. PAMEGRANITE PILLS [Concomitant]
     Indication: PRODUCT USED FOR UNKNOWN INDICATION
  3. FISH OIL [Concomitant]
     Indication: PRODUCT USED FOR UNKNOWN INDICATION
  4. SIMCOR [Suspect]
     Dosage: 500/20MG
     Dates: start: 20100104
  5. HERBAVISION [Concomitant]
     Indication: PRODUCT USED FOR UNKNOWN INDICATION
  6. VITAMIN D [Concomitant]
     Indication: PRODUCT USED FOR UNKNOWN INDICATION
  7. SIMCOR [Suspect]
     Indication: HYPERLIPIDAEMIA
     Dosage: 500/20MG AT BEDTIME
     Dates: end: 20100101
  8. CALCIUM WITH D AND PROBIOTICS [Concomitant]
     Indication: PRODUCT USED FOR UNKNOWN INDICATION
  9. TONALIN CLA [Concomitant]
     Indication: PRODUCT USED FOR UNKNOWN INDICATION

REACTIONS (4)
  - PLANTAR FASCIITIS [None]
  - PAIN [None]
  - NIGHTMARE [None]
  - BACK PAIN [None]
